FAERS Safety Report 5233377-8 (Version None)
Quarter: 2007Q1

REPORT INFORMATION
  Report Type: 
  Country: None (occurrence: None)
  Receive Date: 20070206
  Receipt Date: 20070126
  Transmission Date: 20070707
  Serious: Yes (Other)
  Sender: FDA-Public Use
  Company Number: 230392K07USA

PATIENT
  Age: 40 Year
  Sex: Female

DRUGS (4)
  1. REBIF [Suspect]
     Indication: MULTIPLE SCLEROSIS
     Dosage: 44 MCG, 3 IN 1 WEEKS, SUBCUTANEOUS
     Route: 058
     Dates: start: 20050507
  2. ALTACE (RAMIPRIL /00885601/) [Concomitant]
  3. METRONIDAZOLE (METRONIDAZOLE /00012501/) [Concomitant]
  4. HYDROCHLOROTHIAZIDE [Concomitant]

REACTIONS (5)
  - CONVULSION [None]
  - FATIGUE [None]
  - HYPOAESTHESIA [None]
  - SPEECH DISORDER [None]
  - TREMOR [None]
